FAERS Safety Report 23086281 (Version 1)
Quarter: 2023Q4

REPORT INFORMATION
  Report Type: Spontaneous
  Country: IT (occurrence: IT)
  Receive Date: 20231019
  Receipt Date: 20231019
  Transmission Date: 20240109
  Serious: Yes (Other)
  Sender: FDA-Public Use
  Company Number: IT-ELI_LILLY_AND_COMPANY-IT202310008572

PATIENT
  Age: 76 Year
  Sex: Female

DRUGS (4)
  1. TERIPARATIDE [Suspect]
     Active Substance: TERIPARATIDE
     Indication: Product used for unknown indication
     Dosage: UNK UNK, UNKNOWN
     Route: 065
     Dates: start: 20230412, end: 20230712
  2. CARDIOASPIRINA [Concomitant]
     Active Substance: ASPIRIN
     Indication: Product used for unknown indication
     Dosage: UNK, PRN
  3. PANTOPRAZOLE [Concomitant]
     Active Substance: PANTOPRAZOLE
     Indication: Product used for unknown indication
     Dosage: UNK, PRN
  4. LOSARTAN POTASSIUM [Concomitant]
     Active Substance: LOSARTAN POTASSIUM
     Indication: Product used for unknown indication
     Dosage: UNK

REACTIONS (2)
  - Fibrin D dimer increased [Unknown]
  - Drug ineffective [Unknown]
